FAERS Safety Report 20316024 (Version 3)
Quarter: 2022Q1

REPORT INFORMATION
  Report Type: Spontaneous
  Country: EG (occurrence: EG)
  Receive Date: 20220110
  Receipt Date: 20220125
  Transmission Date: 20220423
  Serious: Yes (Life-Threatening, Hospitalization, Other)
  Sender: FDA-Public Use
  Company Number: EG-NOVOPROD-880646

PATIENT
  Sex: Female
  Weight: 87 kg

DRUGS (18)
  1. RYZODEG 70/30 [Suspect]
     Active Substance: INSULIN ASPART\INSULIN DEGLUDEC
     Indication: Diabetes mellitus
     Dosage: 50 IU, QD
     Route: 058
     Dates: start: 20211030
  2. INSULIN HUMAN [Suspect]
     Active Substance: INSULIN HUMAN
     Indication: Diabetes mellitus
     Dosage: 50 IU MORNING-20 IU NIGHT
     Route: 058
     Dates: end: 20211030
  3. SYNJARDY [Concomitant]
     Active Substance: EMPAGLIFLOZIN\METFORMIN HYDROCHLORIDE
     Dosage: 1000 MG
     Route: 065
  4. SYNJARDY [Concomitant]
     Active Substance: EMPAGLIFLOZIN\METFORMIN HYDROCHLORIDE
     Dosage: SUPPOSED 2 ORAL TAB./DAY SINCE , BUT USED REGULARLY ONLY 7 OR 10 DAYS AGO.
     Route: 065
  5. SYNJARDY [Concomitant]
     Active Substance: EMPAGLIFLOZIN\METFORMIN HYDROCHLORIDE
     Indication: Diabetes mellitus
     Dosage: 12.5 MG
     Route: 065
     Dates: start: 20211027
  6. PROCOMIL [LIDOCAINE] [Concomitant]
     Indication: Rheumatoid arthritis
     Dosage: 2 TAB./DAY
     Route: 065
  7. PROCOMIL [LIDOCAINE] [Concomitant]
     Indication: Osteoporosis
  8. OSTEOCARE [CALCIUM;COLECALCIFEROL;MAGNESIUM;ZINC] [Concomitant]
     Indication: Osteoporosis
     Dosage: UNK
  9. OSTEOCARE [CALCIUM;COLECALCIFEROL;MAGNESIUM;ZINC] [Concomitant]
     Indication: Rheumatoid arthritis
     Dosage: 1 TAB./LUNCH
     Route: 065
  10. DICLOFENAC EPOLAMINE [Concomitant]
     Active Substance: DICLOFENAC EPOLAMINE
     Indication: Osteoporosis
  11. DICLOFENAC EPOLAMINE [Concomitant]
     Active Substance: DICLOFENAC EPOLAMINE
     Indication: Rheumatoid arthritis
     Dosage: 1 TAB./LUNCH
     Route: 065
  12. METHYLPREDNISOLONE SODIUM SUCCINATE [Concomitant]
     Active Substance: METHYLPREDNISOLONE SODIUM SUCCINATE
     Indication: Osteoporosis
  13. METHYLPREDNISOLONE SODIUM SUCCINATE [Concomitant]
     Active Substance: METHYLPREDNISOLONE SODIUM SUCCINATE
     Indication: Rheumatoid arthritis
     Dosage: 1 TAB./ LUNCH
     Route: 065
  14. FOLIC ACID [Concomitant]
     Active Substance: FOLIC ACID
     Dosage: 1 TAB./ DAY
     Route: 065
  15. DEPOVIT B12 [Concomitant]
     Dosage: ONCE WEEKLY
     Route: 065
  16. UNITREXATE [METHOTREXATE SODIUM] [Concomitant]
     Indication: Osteoporosis
  17. UNITREXATE [METHOTREXATE SODIUM] [Concomitant]
     Indication: Rheumatoid arthritis
     Dosage: 7 CM/WEEK
     Route: 065
  18. CONTROLOC [Concomitant]
     Active Substance: PANTOPRAZOLE SODIUM
     Dosage: 1 TAB./MORNING
     Route: 065

REACTIONS (5)
  - Chemotherapy [Unknown]
  - Arteriosclerosis [Not Recovered/Not Resolved]
  - Lymphoma [Not Recovered/Not Resolved]
  - Recurrent cancer [Unknown]
  - Hyperglycaemia [Not Recovered/Not Resolved]

NARRATIVE: CASE EVENT DATE: 20140101
